FAERS Safety Report 9684097 (Version 5)
Quarter: 2014Q3

REPORT INFORMATION
  Report Type: Report from Study
  Country: US (occurrence: US)
  Receive Date: 20131112
  Receipt Date: 20140923
  Transmission Date: 20150326
  Serious: Yes (Hospitalization)
  Sender: FDA-Public Use
  Company Number: US-ACTELION-A-US2013-91057

PATIENT
  Age: 75 Year
  Sex: Female

DRUGS (3)
  1. SILDENAFIL [Concomitant]
     Active Substance: SILDENAFIL
  2. COUMADIN [Concomitant]
     Active Substance: WARFARIN SODIUM
  3. VENTAVIS [Suspect]
     Active Substance: ILOPROST
     Indication: COR PULMONALE CHRONIC
     Dosage: 5 MCG, 6-9 TIMES/DAY
     Route: 055
     Dates: start: 20091005

REACTIONS (9)
  - Weight decreased [Unknown]
  - Gallbladder disorder [Unknown]
  - Fluid retention [Unknown]
  - Oedema peripheral [Unknown]
  - Drug dose omission [Unknown]
  - Renal disorder [Unknown]
  - Cardiac disorder [Unknown]
  - Dialysis [Unknown]
  - Liver disorder [Unknown]

NARRATIVE: CASE EVENT DATE: 20140320
